FAERS Safety Report 6310377-8 (Version None)
Quarter: 2009Q3

REPORT INFORMATION
  Report Type: 
  Country: None (occurrence: None)
  Receive Date: 20090814
  Receipt Date: 20090803
  Transmission Date: 20100115
  Serious: Yes (Other)
  Sender: FDA-Public Use
  Company Number: GB-ROCHE-648913

PATIENT
  Age: 2 Year
  Sex: Female

DRUGS (1)
  1. TAMIFLU [Suspect]
     Indication: DRUG USE FOR UNKNOWN INDICATION
     Route: 065
     Dates: start: 20090729, end: 20090731

REACTIONS (3)
  - DIARRHOEA [None]
  - HALLUCINATION, VISUAL [None]
  - VOMITING [None]
